FAERS Safety Report 10166817 (Version 1)
Quarter: 2014Q2

REPORT INFORMATION
  Report Type: Spontaneous
  Country: US (occurrence: None)
  Receive Date: 20140509
  Receipt Date: 20140509
  Transmission Date: 20141212
  Serious: Yes (Other)
  Sender: FDA-Public Use
  Company Number: None

PATIENT
  Age: 12 Year
  Sex: Female
  Weight: 41.5 kg

DRUGS (17)
  1. CLOFAZIMINE [Suspect]
     Indication: MYCOBACTERIUM CHELONAE INFECTION
     Route: 048
  2. CLOFAZIMINE [Suspect]
     Indication: ABSCESS
     Route: 048
  3. CLARITHROMYCIN [Concomitant]
  4. SODIUM CHLORIDE [Concomitant]
  5. ALBUTEROL [Concomitant]
  6. AMIKACIN [Concomitant]
  7. CALCIUM [Suspect]
  8. CHOLECALCIFEROL [Concomitant]
  9. DORNASE ALFA [Concomitant]
  10. PANCRELIPASE [Concomitant]
  11. TIGECYCLINE [Concomitant]
  12. ACETAMINOPHEN [Concomitant]
  13. EMOLLIENTS [Concomitant]
  14. IBUPRFEN [Concomitant]
  15. MORPHINE [Concomitant]
  16. ODANSETRON [Concomitant]
  17. TRAMADOL [Concomitant]

REACTIONS (1)
  - Depression [None]
